FAERS Safety Report 25103491 (Version 1)
Quarter: 2025Q1

REPORT INFORMATION
  Report Type: Spontaneous
  Country: US (occurrence: US)
  Receive Date: 20250321
  Receipt Date: 20250321
  Transmission Date: 20250409
  Serious: No
  Sender: BIOGEN
  Company Number: US-BIOGEN-2025BI01304832

PATIENT
  Sex: Female

DRUGS (11)
  1. VUMERITY [Suspect]
     Active Substance: DIROXIMEL FUMARATE
     Indication: Multiple sclerosis
     Dosage: TAKE 462MG (2 CAPSULES) BY MOUTH TWO TIMES DAILY.
     Route: 050
  2. DALFAMPRIDINE [Concomitant]
     Active Substance: DALFAMPRIDINE
     Route: 050
  3. LIPITOR [Concomitant]
     Active Substance: ATORVASTATIN CALCIUM
     Route: 050
  4. OXCARBAZEPINE [Concomitant]
     Active Substance: OXCARBAZEPINE
     Route: 050
  5. DULOXETINE HYDROCHLORIDE [Concomitant]
     Active Substance: DULOXETINE HYDROCHLORIDE
     Route: 050
  6. ARIPIPRAZOLE [Concomitant]
     Active Substance: ARIPIPRAZOLE
     Route: 050
  7. MONTELUKAST SODIUM [Concomitant]
     Active Substance: MONTELUKAST SODIUM
     Route: 050
  8. LOSARTAN POTASSIUM [Concomitant]
     Active Substance: LOSARTAN POTASSIUM
     Route: 050
  9. AMLODIPINE BESYLATE [Concomitant]
     Active Substance: AMLODIPINE BESYLATE
     Route: 050
  10. ASMANEX [Concomitant]
     Active Substance: MOMETASONE FUROATE
     Route: 050
  11. PROAIR RESPICLICK [Concomitant]
     Active Substance: ALBUTEROL SULFATE
     Route: 050

REACTIONS (2)
  - Gait disturbance [Unknown]
  - Memory impairment [Unknown]
